FAERS Safety Report 8360559-9 (Version None)
Quarter: 2012Q2

REPORT INFORMATION
  Report Type: 
  Country: None (occurrence: None)
  Receive Date: 20120515
  Receipt Date: 20120507
  Transmission Date: 20120825
  Serious: Yes (Hospitalization, Other)
  Sender: FDA-Public Use
  Company Number: PHHY2012PH039043

PATIENT
  Age: 52 Year

DRUGS (1)
  1. AFINITOR [Suspect]
     Dosage: 10 MG, UNK

REACTIONS (6)
  - DIZZINESS [None]
  - PALLOR [None]
  - HYPOTENSION [None]
  - HAEMATOCHEZIA [None]
  - HAEMOGLOBIN INCREASED [None]
  - GASTROINTESTINAL HAEMORRHAGE [None]
